FAERS Safety Report 14325361 (Version 1)
Quarter: 2017Q4

REPORT INFORMATION
  Report Type: Spontaneous
  Country: IT (occurrence: IT)
  Receive Date: 20171226
  Receipt Date: 20171226
  Transmission Date: 20180321
  Serious: Yes (Other)
  Sender: FDA-Public Use
  Company Number: IT-PTC THERAPEUTICS, INC.-IT-2017PTC001577

PATIENT
  Sex: Male

DRUGS (1)
  1. TRANSLARNA [Suspect]
     Active Substance: ATALUREN
     Indication: PRODUCT USED FOR UNKNOWN INDICATION
     Dosage: UNK

REACTIONS (1)
  - Precocious puberty [Unknown]

NARRATIVE: CASE EVENT DATE: 20161230
